FAERS Safety Report 8807861 (Version 2)
Quarter: 2012Q4

REPORT INFORMATION
  Report Type: 
  Country: JP (occurrence: JP)
  Receive Date: 20120925
  Receipt Date: 20121212
  Transmission Date: 20130627
  Serious: Yes (Other)
  Sender: FDA-Public Use
  Company Number: JP-GLAXOSMITHKLINE-B0832105A

PATIENT
  Age: 6 None

DRUGS (2)
  1. FLUTIDE [Suspect]
     Indication: ASTHMA
     Dosage: 200MCG Twice per day
     Route: 055
     Dates: start: 2011
  2. SULTANOL [Concomitant]
     Indication: ASTHMA
     Route: 055
     Dates: start: 2011

REACTIONS (5)
  - Adrenal insufficiency [Unknown]
  - Blood cortisol decreased [Unknown]
  - Blood corticotrophin decreased [Unknown]
  - Weight decreased [Unknown]
  - Blood pressure decreased [Unknown]
